FAERS Safety Report 21405654 (Version 1)
Quarter: 2022Q4

REPORT INFORMATION
  Report Type: Other
  Country: US (occurrence: None)
  Receive Date: 20221004
  Receipt Date: 20221004
  Transmission Date: 20230112
  Serious: No
  Sender: FDA-Public Use
  Company Number: US-ROCHE-2644041

PATIENT
  Age: 63 Year
  Sex: Female

DRUGS (2)
  1. OCREVUS [Suspect]
     Active Substance: OCRELIZUMAB
     Indication: Relapsing multiple sclerosis
     Dosage: NEXT INFUSION RECEIVED ON 26/FEB/2019
     Route: 042
     Dates: start: 20190212
  2. OCREVUS [Suspect]
     Active Substance: OCRELIZUMAB
     Dosage: NEXT INFUSIONS RECEIVED ON 14/JAN/2020 AND 30/JUN/2020. PREVIOUS DATE OF TREATMENT :12/21/2021?ANTIC
     Route: 042
     Dates: start: 20190730

REACTIONS (2)
  - Illness [Unknown]
  - COVID-19 [Recovered/Resolved]

NARRATIVE: CASE EVENT DATE: 20220808
